FAERS Safety Report 4604211-1 (Version None)
Quarter: 2005Q1

REPORT INFORMATION
  Report Type: 
  Country: None (occurrence: None)
  Receive Date: 20050214
  Receipt Date: 20050105
  Transmission Date: 20050727
  Serious: No
  Sender: FDA-Public Use
  Company Number: USA050187645

PATIENT
  Sex: Male

DRUGS (11)
  1. CIALIS [Suspect]
     Indication: ERECTILE DYSFUNCTION
     Dosage: 20 MG
  2. ATENOLOL [Concomitant]
  3. LIPITOR [Concomitant]
  4. ASPIRIN [Concomitant]
  5. PRILOSEC (OMEPRAZOLE RATIOPHARM) [Concomitant]
  6. MULTIVITAMIN [Concomitant]
  7. CALCIUM D [Concomitant]
  8. GLUCOSAMINE [Concomitant]
  9. VITAMIN C [Concomitant]
  10. EQUINACCIA [Concomitant]
  11. HYZAAR [Concomitant]

REACTIONS (2)
  - DRUG INEFFECTIVE [None]
  - THERAPEUTIC RESPONSE DECREASED [None]
